FAERS Safety Report 11453246 (Version 2)
Quarter: 2018Q1

REPORT INFORMATION
  Report Type: Spontaneous
  Country: US (occurrence: US)
  Receive Date: 20150903
  Receipt Date: 20180326
  Transmission Date: 20180508
  Serious: Yes (Other)
  Sender: FDA-Public Use
  Company Number: US-PFIZER INC-2015283894

PATIENT
  Age: 63 Year
  Sex: Female
  Weight: 53.97 kg

DRUGS (9)
  1. DILANTIN [Suspect]
     Active Substance: PHENYTOIN
     Indication: GENERALISED TONIC-CLONIC SEIZURE
     Dosage: 300 MG, 1X/DAY (AT BEDTIME)
     Route: 048
     Dates: start: 2015
  2. DILANTIN [Suspect]
     Active Substance: PHENYTOIN
     Indication: SEIZURE
     Dosage: UNK
  3. RISEDRONATE [Concomitant]
     Active Substance: RISEDRONATE SODIUM
     Indication: BONE DISORDER
     Dosage: 150 MG, MONTHLY
     Route: 048
  4. RISEDRONATE [Concomitant]
     Active Substance: RISEDRONATE SODIUM
     Indication: OSTEOPOROSIS
  5. DILANTIN [Suspect]
     Active Substance: PHENYTOIN
     Dosage: 300 MG, UNK
  6. DILANTIN [Suspect]
     Active Substance: PHENYTOIN
     Dosage: UNK
  7. DILANTIN [Suspect]
     Active Substance: PHENYTOIN
     Dosage: 350 MG, 1X/DAY (EVERY NIGHT)
     Route: 048
  8. DILANTIN [Suspect]
     Active Substance: PHENYTOIN
     Dosage: 400 MG, 1X/DAY (EVERY NIGHT)
     Route: 048
  9. DILANTIN [Suspect]
     Active Substance: PHENYTOIN
     Dosage: 50 MG, 1X/DAY (ONE AT NIGHT)
     Route: 048
     Dates: start: 2010

REACTIONS (10)
  - Disease recurrence [Not Recovered/Not Resolved]
  - Dyskinesia [Unknown]
  - Condition aggravated [Unknown]
  - Gingival blister [Not Recovered/Not Resolved]
  - Gingival swelling [Not Recovered/Not Resolved]
  - Loss of consciousness [Unknown]
  - Gingival erythema [Unknown]
  - Weight fluctuation [Unknown]
  - Bone disorder [Unknown]
  - Arthralgia [Unknown]
